FAERS Safety Report 13368426 (Version 3)
Quarter: 2017Q3

REPORT INFORMATION
  Report Type: Spontaneous
  Country: US (occurrence: US)
  Receive Date: 20170324
  Receipt Date: 20170718
  Transmission Date: 20171127
  Serious: No
  Sender: FDA-Public Use
  Company Number: US-PFIZER INC-2017121099

PATIENT
  Age: 55 Year
  Sex: Male
  Weight: 107.9 kg

DRUGS (11)
  1. CURCUMIN [Concomitant]
     Active Substance: CURCUMIN
     Dosage: UNK
  2. VIAGRA [Suspect]
     Active Substance: SILDENAFIL CITRATE
     Dosage: 50 MG, UNK [QD]
     Route: 048
     Dates: start: 20160711
  3. VIAGRA [Suspect]
     Active Substance: SILDENAFIL CITRATE
     Indication: LIBIDO DECREASED
     Dosage: 50 MG, AS NEEDED, (TAKE 1 TABLET BY MOUTH ONCE DAILY IF NEEDED)
     Route: 048
     Dates: start: 201611
  4. VIAGRA [Suspect]
     Active Substance: SILDENAFIL CITRATE
     Dosage: UNK, (1/MONTH TO KEEP MARRIAGE GOING)
  5. TESTOSTERONE. [Concomitant]
     Active Substance: TESTOSTERONE
     Indication: BLOOD TESTOSTERONE DECREASED
     Dosage: UNK UNK, WEEKLY
     Route: 051
     Dates: start: 2016, end: 20170412
  6. VITAMIN D [Concomitant]
     Active Substance: CHOLECALCIFEROL
     Dosage: UNK
  7. VIAGRA [Suspect]
     Active Substance: SILDENAFIL CITRATE
     Indication: ERECTILE DYSFUNCTION
     Dosage: UNK, (I HAVE 3 PILLS LEFT, HAVEN^T USED IN 30 DAYS)
  8. TESTOSTERONE. [Concomitant]
     Active Substance: TESTOSTERONE
     Indication: HYPOGONADISM
  9. DHEA [Concomitant]
     Active Substance: PRASTERONE
     Dosage: UNK
  10. ADRENAL [Concomitant]
     Active Substance: EPINEPHRINE
     Dosage: UNK
  11. VIAGRA [Suspect]
     Active Substance: SILDENAFIL CITRATE
     Indication: SEXUAL DYSFUNCTION
     Dosage: UNK, (I GOT 6 TABLETS SO I TRY TO TOLERATE)

REACTIONS (9)
  - Feeling abnormal [Recovered/Resolved]
  - Fatigue [Recovered/Resolved]
  - Depression [Recovered/Resolved]
  - Loss of personal independence in daily activities [Unknown]
  - Antisocial behaviour [Recovered/Resolved]
  - Asthenia [Recovered/Resolved]
  - Mobility decreased [Recovered/Resolved]
  - Blood testosterone decreased [Unknown]
  - Blood testosterone free decreased [Unknown]

NARRATIVE: CASE EVENT DATE: 2017
